FAERS Safety Report 14600230 (Version 1)
Quarter: 2018Q1

REPORT INFORMATION
  Report Type: Spontaneous
  Country: LU (occurrence: LU)
  Receive Date: 20180305
  Receipt Date: 20180305
  Transmission Date: 20180509
  Serious: Yes (Hospitalization)
  Sender: FDA-Public Use
  Company Number: LU-PFIZER INC-2018084561

PATIENT
  Age: 16 Year
  Sex: Male

DRUGS (4)
  1. NUROFEN CF [Concomitant]
     Route: 048
  2. DALACIN [Suspect]
     Active Substance: CLINDAMYCIN
     Indication: DENTAL CARE
     Dosage: UNK
     Route: 048
     Dates: start: 20170901, end: 20170901
  3. MEDROL [Suspect]
     Active Substance: METHYLPREDNISOLONE
     Indication: DENTAL CARE
     Dosage: UNK
     Route: 048
     Dates: start: 20170901, end: 20170901
  4. DAFALGAN CODEINE [Concomitant]
     Active Substance: ACETAMINOPHEN\CODEINE PHOSPHATE
     Route: 048

REACTIONS (1)
  - Acute generalised exanthematous pustulosis [Recovered/Resolved]

NARRATIVE: CASE EVENT DATE: 20170901
